FAERS Safety Report 18538966 (Version 1)
Quarter: 2020Q4

REPORT INFORMATION
  Report Type: Spontaneous
  Country: US (occurrence: US)
  Receive Date: 20201123
  Receipt Date: 20201123
  Transmission Date: 20210114
  Serious: No
  Sender: FDA-Public Use
  Company Number: None

PATIENT
  Age: 72 Year
  Sex: Female
  Weight: 47.6 kg

DRUGS (1)
  1. REMDESIVIR FOR EMERGENCY USE AUTHORIZATION [Suspect]
     Active Substance: REMDESIVIR
     Indication: COVID-19
     Route: 041

REACTIONS (1)
  - Product preparation error [None]

NARRATIVE: CASE EVENT DATE: 20201120
